FAERS Safety Report 6616599-0 (Version None)
Quarter: 2010Q1

REPORT INFORMATION
  Report Type: 
  Country: None (occurrence: None)
  Receive Date: 20100305
  Receipt Date: 20100301
  Transmission Date: 20100710
  Serious: Yes (Death, Hospitalization)
  Sender: FDA-Public Use
  Company Number: PHHO2008AU02929

PATIENT
  Sex: Female
  Weight: 53 kg

DRUGS (4)
  1. NEORAL [Suspect]
     Indication: LUNG TRANSPLANT
  2. CERTICAN [Suspect]
     Indication: LUNG TRANSPLANT
     Dosage: 0.25 MG, BID
     Route: 048
     Dates: start: 20080505, end: 20090518
  3. ERL 080A ERL+TAB [Suspect]
     Indication: LUNG TRANSPLANT
     Dosage: 1080 MG, BID
     Route: 048
     Dates: start: 20080211, end: 20080221
  4. MORPHINE [Concomitant]
     Indication: PAIN
     Dosage: 5 MG, PRN
     Dates: start: 20090517, end: 20090520

REACTIONS (25)
  - ACUTE RESPIRATORY FAILURE [None]
  - BACTERAEMIA [None]
  - BILEVEL POSITIVE AIRWAY PRESSURE [None]
  - CARDIAC FAILURE CONGESTIVE [None]
  - CATHETER PLACEMENT [None]
  - DEHYDRATION [None]
  - DYSPNOEA [None]
  - ENDOTRACHEAL INTUBATION [None]
  - HAEMOPTYSIS [None]
  - HEADACHE [None]
  - HYPERCAPNIA [None]
  - HYPOTENSION [None]
  - LUNG CONSOLIDATION [None]
  - LUNG INFILTRATION [None]
  - LUNG TRANSPLANT REJECTION [None]
  - MECHANICAL VENTILATION [None]
  - NEPHROPATHY TOXIC [None]
  - OXYGEN SATURATION [None]
  - PNEUMOTHORAX [None]
  - PSEUDOMONAS INFECTION [None]
  - PULMONARY OEDEMA [None]
  - PYREXIA [None]
  - RENAL FAILURE ACUTE [None]
  - RENAL IMPAIRMENT [None]
  - RESPIRATORY TRACT INFECTION [None]
